FAERS Safety Report 21702951 (Version 1)
Quarter: 2022Q4

REPORT INFORMATION
  Report Type: Report from Study
  Country: US (occurrence: US)
  Receive Date: 20221209
  Receipt Date: 20221209
  Transmission Date: 20230113
  Serious: No
  Sender: FDA-Public Use
  Company Number: US-ABBVIE-4185636

PATIENT
  Sex: Male

DRUGS (1)
  1. HUMIRA [Suspect]
     Active Substance: ADALIMUMAB
     Indication: Rheumatoid arthritis
     Dosage: CITRATE FREE
     Route: 058

REACTIONS (8)
  - Abdominal pain [Recovering/Resolving]
  - Blood glucose decreased [Unknown]
  - Dyspnoea [Unknown]
  - Pain [Unknown]
  - Decreased appetite [Recovering/Resolving]
  - Hypoaesthesia [Unknown]
  - Hypophagia [Unknown]
  - Abdominal pain upper [Unknown]
